FAERS Safety Report 16756602 (Version 2)
Quarter: 2019Q3

REPORT INFORMATION
  Report Type: Report from Study
  Country: US (occurrence: US)
  Receive Date: 20190829
  Receipt Date: 20190912
  Transmission Date: 20191005
  Serious: Yes (Hospitalization, Other)
  Sender: FDA-Public Use
  Company Number: PHHO2019US008631

PATIENT
  Age: 4 Year
  Sex: Female
  Weight: 17.2 kg

DRUGS (16)
  1. PROGRAF [Suspect]
     Active Substance: TACROLIMUS\TACROLIMUS ANHYDROUS
     Dosage: 0.5 MG, UNK
     Route: 048
     Dates: start: 20161012, end: 20171015
  2. ILARIS [Suspect]
     Active Substance: CANAKINUMAB
     Dosage: 53 MG, UNK
     Route: 065
     Dates: start: 20161012, end: 20180115
  3. REMICADE [Suspect]
     Active Substance: INFLIXIMAB
     Indication: IMMUNOMODULATORY THERAPY
     Dosage: UNK MG, UNK
     Route: 065
  4. ILARIS [Suspect]
     Active Substance: CANAKINUMAB
     Dosage: 65 MG, UNK
     Route: 065
     Dates: start: 20180116, end: 20180610
  5. REMICADE [Suspect]
     Active Substance: INFLIXIMAB
     Dosage: 130 MG, UNK
     Route: 065
     Dates: start: 20190806
  6. PROGRAF [Suspect]
     Active Substance: TACROLIMUS\TACROLIMUS ANHYDROUS
     Dosage: 0.8 MG, UNK
     Route: 048
     Dates: start: 20171016, end: 20180610
  7. PROGRAF [Suspect]
     Active Substance: TACROLIMUS\TACROLIMUS ANHYDROUS
     Dosage: UNK
     Route: 065
     Dates: start: 20190821
  8. REMICADE [Suspect]
     Active Substance: INFLIXIMAB
     Indication: JUVENILE IDIOPATHIC ARTHRITIS
     Dosage: 100 MG, UNK
     Route: 065
     Dates: start: 20190301, end: 20190305
  9. RASUVO [Suspect]
     Active Substance: METHOTREXATE SODIUM
     Indication: JUVENILE IDIOPATHIC ARTHRITIS
     Dosage: 15 MG, UNK
     Route: 065
     Dates: start: 20190115, end: 20190816
  10. RASUVO [Suspect]
     Active Substance: METHOTREXATE SODIUM
     Indication: IMMUNOMODULATORY THERAPY
     Dosage: UNK
     Route: 065
     Dates: start: 20190816
  11. PROGRAF [Suspect]
     Active Substance: TACROLIMUS\TACROLIMUS ANHYDROUS
     Indication: JUVENILE IDIOPATHIC ARTHRITIS
     Dosage: 0.3 MG, UNK
     Route: 048
     Dates: start: 20151120
  12. ILARIS [Suspect]
     Active Substance: CANAKINUMAB
     Dosage: 85 MG, UNK
     Route: 065
     Dates: start: 20180611
  13. PROGRAF [Suspect]
     Active Substance: TACROLIMUS\TACROLIMUS ANHYDROUS
     Dosage: 1 MG, UNK
     Route: 065
     Dates: start: 20190806
  14. PROGRAF [Suspect]
     Active Substance: TACROLIMUS\TACROLIMUS ANHYDROUS
     Indication: HAEMOPHAGOCYTIC LYMPHOHISTIOCYTOSIS
     Dosage: 0.4 MG, UNK
     Route: 048
     Dates: start: 20151229, end: 20160817
  15. PROGRAF [Suspect]
     Active Substance: TACROLIMUS\TACROLIMUS ANHYDROUS
     Dosage: 0.45 MG, UNK
     Route: 048
     Dates: start: 20160818, end: 20161011
  16. PROGRAF [Suspect]
     Active Substance: TACROLIMUS\TACROLIMUS ANHYDROUS
     Dosage: 0.9 MG, UNK
     Route: 048
     Dates: start: 20180611

REACTIONS (6)
  - Pyrexia [Recovered/Resolved]
  - Inflammatory bowel disease [Unknown]
  - Clostridium difficile infection [Recovered/Resolved]
  - Chills [Unknown]
  - Tachycardia [Unknown]
  - Diarrhoea [Recovered/Resolved]

NARRATIVE: CASE EVENT DATE: 20190115
